FAERS Safety Report 13666622 (Version 1)
Quarter: 2017Q2

REPORT INFORMATION
  Report Type: Spontaneous
  Country: US (occurrence: US)
  Receive Date: 20170619
  Receipt Date: 20170619
  Transmission Date: 20170830
  Serious: No
  Sender: FDA-Public Use
  Company Number: US-ROCHE-1488796

PATIENT
  Age: 56 Year
  Sex: Female

DRUGS (1)
  1. XELODA [Suspect]
     Active Substance: CAPECITABINE
     Indication: NEOPLASM MALIGNANT
     Dosage: 3 TABS TWICE A DAY, EVERY 10-12 HRS WITHIN 30 MINUTES AFTER A MEAL (FOR 6 WEEKS)
     Route: 048
     Dates: start: 20141013

REACTIONS (2)
  - Diarrhoea [Unknown]
  - Incontinence [Unknown]
